FAERS Safety Report 4885004-7 (Version None)
Quarter: 2006Q1

REPORT INFORMATION
  Report Type: 
  Country: None (occurrence: None)
  Receive Date: 20060117
  Receipt Date: 20060106
  Transmission Date: 20060701
  Serious: Yes (Hospitalization, Other)
  Sender: FDA-Public Use
  Company Number: 2005-11-0777

PATIENT
  Age: 58 Year
  Sex: Female
  Weight: 80 kg

DRUGS (8)
  1. TEMODAR [Suspect]
     Indication: GLIOBLASTOMA MULTIFORME
     Dosage: 150 MG QD, ORAL; 150 MG QD; ORAL
     Route: 048
     Dates: start: 20051017, end: 20051130
  2. RADIATION THERAPY [Concomitant]
  3. FLUOXETINE [Concomitant]
  4. LISINOPRIL [Concomitant]
  5. FLOMAX [Concomitant]
  6. DILANTIN [Concomitant]
  7. BACTRIM DS [Concomitant]
  8. ZANTAC [Concomitant]

REACTIONS (3)
  - DEEP VEIN THROMBOSIS [None]
  - MUSCULOSKELETAL STIFFNESS [None]
  - OEDEMA PERIPHERAL [None]
